FAERS Safety Report 8806391 (Version 1)
Quarter: 2012Q4

REPORT INFORMATION
  Report Type: Spontaneous
  Country: US (occurrence: None)
  Receive Date: 20120918
  Receipt Date: 20120918
  Transmission Date: 20130627
  Serious: Yes (Hospitalization, Other)
  Sender: FDA-Public Use
  Company Number: 2012US-004349

PATIENT
  Age: 48 Year
  Sex: Male
  Weight: 89 kg

DRUGS (12)
  1. OMONTYS (PEGINESATIDE) SOLUTION FOR INJECTION [Suspect]
     Dates: start: 20120723, end: 20120723
  2. ASPIRIN (ACETYLSALICYLIC ACID) [Concomitant]
  3. RENAL VITAMINS [Concomitant]
  4. KETOPROFEN (KETOPROFEN) [Concomitant]
  5. OMEPRAZOLE (OMEPRAZOLE) [Concomitant]
  6. CRESTOR (ROSUVASTATIN CALCIUM) [Concomitant]
  7. TUMS (CALCIUM CARBONATE, MAGNESIUM CARBONATE, MAGNESIUM TRISILICATE) [Concomitant]
  8. SENSIPAR (CINACALCET HYDROCHLORIDE) [Concomitant]
  9. RENAGEL (SEVELAMER) [Concomitant]
  10. TOPROL XL (METOPOROLOL SUCCINATE) [Concomitant]
  11. EPOGEN (EPOETIN ALFA) [Concomitant]
  12. HECTOROL (DOXERCALCIFEROL) [Concomitant]

REACTIONS (4)
  - Atrioventricular block second degree [None]
  - Atrial fibrillation [None]
  - Pulmonary oedema [None]
  - Haemodialysis [None]
